FAERS Safety Report 7278530-7 (Version None)
Quarter: 2011Q1

REPORT INFORMATION
  Report Type: 
  Country: None (occurrence: None)
  Receive Date: 20110207
  Receipt Date: 20110201
  Transmission Date: 20110831
  Serious: Yes (Disabling)
  Sender: FDA-Public Use
  Company Number: GB-ABBOTT-11P-167-0699434-00

PATIENT
  Age: 47 Year
  Sex: Female
  Weight: 133 kg

DRUGS (19)
  1. FLUOXETINE HYDROCHLORIDE [Concomitant]
     Dates: start: 20101221, end: 20110101
  2. AMLODIPINE [Concomitant]
     Indication: PRODUCT USED FOR UNKNOWN INDICATION
     Dates: start: 20100923, end: 20101021
  3. PREDNISOLONE [Concomitant]
     Indication: PRODUCT USED FOR UNKNOWN INDICATION
     Dates: start: 20101220, end: 20110109
  4. BUDESONIDE [Concomitant]
     Dates: start: 20110104
  5. DIFFLAM [Concomitant]
     Indication: PRODUCT USED FOR UNKNOWN INDICATION
     Dates: start: 20101230, end: 20110104
  6. KLARICID [Suspect]
     Indication: PRODUCT USED FOR UNKNOWN INDICATION
     Dates: start: 20110113
  7. KLARICID [Suspect]
     Dates: start: 20110104
  8. AMOXICILLIN [Concomitant]
     Indication: PRODUCT USED FOR UNKNOWN INDICATION
     Dates: start: 20101220, end: 20101221
  9. DICLOFENAC SODIUM [Concomitant]
     Indication: PRODUCT USED FOR UNKNOWN INDICATION
     Dates: start: 20100923, end: 20101021
  10. FLUOXETINE HYDROCHLORIDE [Concomitant]
     Indication: PRODUCT USED FOR UNKNOWN INDICATION
     Dates: start: 20100921, end: 20101023
  11. DICLOFENAC SODIUM [Concomitant]
     Dates: start: 20101221, end: 20110101
  12. TAMSULOSIN HYDROCHLORIDE [Concomitant]
     Indication: PRODUCT USED FOR UNKNOWN INDICATION
     Dates: start: 20100923, end: 20101021
  13. VENTOLIN [Concomitant]
     Indication: PRODUCT USED FOR UNKNOWN INDICATION
     Dates: start: 20110104
  14. OXYTETRACYCLINE [Concomitant]
     Indication: PRODUCT USED FOR UNKNOWN INDICATION
     Dates: start: 20110107
  15. LISINOPRIL [Concomitant]
     Indication: PRODUCT USED FOR UNKNOWN INDICATION
     Dates: start: 20100923, end: 20101021
  16. LISINOPRIL [Concomitant]
     Dates: start: 20101221, end: 20110101
  17. BUDESONIDE [Concomitant]
     Indication: PRODUCT USED FOR UNKNOWN INDICATION
     Dates: start: 20101221, end: 20110101
  18. AMLODIPINE [Concomitant]
     Dates: start: 20101221, end: 20110101
  19. PREDNISOLONE [Concomitant]
     Dates: start: 20101230, end: 20110109

REACTIONS (1)
  - JOINT SWELLING [None]
